FAERS Safety Report 9192055 (Version 2)
Quarter: 2013Q2

REPORT INFORMATION
  Report Type: Spontaneous
  Country: US (occurrence: None)
  Receive Date: 20130325
  Receipt Date: 20130409
  Transmission Date: 20140414
  Serious: Yes (Death)
  Sender: FDA-Public Use
  Company Number: ALK-2013-001379

PATIENT
  Sex: 0

DRUGS (3)
  1. VIVITRIOL (VIVITRIOL_NDA) INJECTION, 380MG [Suspect]
     Indication: DRUG DEPENDENCE
     Route: 030
  2. VIVITRIOL (VIVITRIOL_NDA) INJECTION, 380MG [Suspect]
     Indication: PRODUCT USED FOR UNKNOWN INDICATION
     Route: 030
  3. FENTANYL (FENTANYL) [Suspect]
     Indication: PRODUCT USED FOR UNKNOWN INDICATION

REACTIONS (2)
  - Accidental overdose [None]
  - Drug abuse [None]
